FAERS Safety Report 15754815 (Version 10)
Quarter: 2020Q2

REPORT INFORMATION
  Report Type: Report from Study
  Country: DE (occurrence: DE)
  Receive Date: 20181224
  Receipt Date: 20200407
  Transmission Date: 20200713
  Serious: Yes (Hospitalization, Other)
  Sender: FDA-Public Use
  Company Number: DE-ROCHE-2235012

PATIENT
  Age: 37 Year
  Sex: Female

DRUGS (11)
  1. OCREVUS [Suspect]
     Active Substance: OCRELIZUMAB
     Indication: SECONDARY PROGRESSIVE MULTIPLE SCLEROSIS
     Route: 042
     Dates: start: 20181227
  2. VOMEX A [Concomitant]
     Active Substance: DIMENHYDRINATE
     Route: 065
  3. OCREVUS [Suspect]
     Active Substance: OCRELIZUMAB
     Route: 042
     Dates: start: 20190627
  4. OPIPRAMOL [Concomitant]
     Active Substance: OPIPRAMOL
     Route: 065
  5. SPASMEX [TROSPIUM CHLORIDE] [Concomitant]
     Route: 065
  6. OCREVUS [Suspect]
     Active Substance: OCRELIZUMAB
     Indication: RELAPSING-REMITTING MULTIPLE SCLEROSIS
     Route: 042
     Dates: start: 20181212
  7. CORTISONE [Suspect]
     Active Substance: CORTISONE
     Indication: MULTIPLE SCLEROSIS RELAPSE
     Dosage: 3 X 500 MG
     Route: 065
     Dates: start: 201901
  8. PREGABALIN. [Concomitant]
     Active Substance: PREGABALIN
     Dosage: 2 TO 4 TABLETS DAILY
     Route: 065
  9. OMEPRAZOL [OMEPRAZOLE] [Concomitant]
     Active Substance: OMEPRAZOLE
     Route: 065
  10. PARACETAMOL [Concomitant]
     Active Substance: ACETAMINOPHEN
     Route: 065
  11. PRIMULA VERIS;THYMUS VULGARIS [Concomitant]

REACTIONS (20)
  - Renal pain [Not Recovered/Not Resolved]
  - Fall [Unknown]
  - Blood pressure decreased [Recovered/Resolved]
  - Body temperature increased [Recovered/Resolved]
  - Nasopharyngitis [Recovered/Resolved]
  - Dizziness [Not Recovered/Not Resolved]
  - Urinary tract infection [Not Recovered/Not Resolved]
  - Muscular weakness [Not Recovered/Not Resolved]
  - Abdominal pain upper [Recovered/Resolved]
  - Contusion [Recovered/Resolved]
  - Off label use [Unknown]
  - Abdominal pain upper [Recovered/Resolved]
  - Nausea [Recovered/Resolved]
  - Fatigue [Not Recovered/Not Resolved]
  - Multiple sclerosis relapse [Recovered/Resolved]
  - Pyelitis [Recovered/Resolved]
  - Blood pressure fluctuation [Recovered/Resolved]
  - Neuralgia [Recovering/Resolving]
  - Gait disturbance [Not Recovered/Not Resolved]
  - Intentional product use issue [Unknown]

NARRATIVE: CASE EVENT DATE: 20181212
